FAERS Safety Report 8976789 (Version 5)
Quarter: 2013Q3

REPORT INFORMATION
  Report Type: Spontaneous
  Country: US (occurrence: US)
  Receive Date: 20121220
  Receipt Date: 20130926
  Transmission Date: 20140515
  Serious: Yes (Hospitalization, Other)
  Sender: FDA-Public Use
  Company Number: US-009507513-1212USA007582

PATIENT
  Sex: Female
  Weight: 66.21 kg

DRUGS (11)
  1. FOSAMAX [Suspect]
     Indication: OSTEOPENIA
     Dosage: 70 MG, UNK
     Route: 048
     Dates: start: 20040320, end: 20080206
  2. FOSAMAX [Suspect]
     Dosage: 70 MG, QD
     Route: 048
  3. ALENDRONATE SODIUM [Suspect]
     Indication: OSTEOPENIA
     Dosage: 70 MG, QW
     Route: 048
     Dates: start: 20080206
  4. CALCIUM (UNSPECIFIED) [Concomitant]
     Indication: PRODUCT USED FOR UNKNOWN INDICATION
     Dosage: 600 MG, QD
     Dates: start: 2000
  5. OMEGA-3 MARINE TRIGLYCERIDES [Concomitant]
     Indication: PRODUCT USED FOR UNKNOWN INDICATION
     Dosage: 1400 MG, BID
     Dates: start: 2000
  6. OMEGA-3 MARINE TRIGLYCERIDES [Concomitant]
     Dosage: 1000 MG, QD
  7. FLAXSEED [Concomitant]
     Indication: PRODUCT USED FOR UNKNOWN INDICATION
     Dosage: 2000 IU, QD
     Dates: start: 2000
  8. FLAXSEED [Concomitant]
     Dosage: 1300 MG, QD
  9. GNC GLUCOSAMINE CHONDROTIN [Concomitant]
     Indication: PRODUCT USED FOR UNKNOWN INDICATION
     Dosage: 500 MG, QD
     Dates: start: 2000
  10. ASCORBIC ACID [Concomitant]
     Indication: PRODUCT USED FOR UNKNOWN INDICATION
     Dosage: 500 MG, QD
     Dates: start: 2000
  11. METOPROLOL [Concomitant]
     Indication: HYPERTENSION

REACTIONS (109)
  - Intramedullary rod insertion [Unknown]
  - Open reduction of fracture [Recovered/Resolved]
  - Acute myocardial infarction [Unknown]
  - Osteoarthritis [Unknown]
  - Knee arthroplasty [Unknown]
  - Knee arthroplasty [Unknown]
  - Osteonecrosis [Unknown]
  - Ataxia [Unknown]
  - Fall [Unknown]
  - Fracture nonunion [Unknown]
  - Troponin increased [Unknown]
  - Medical device removal [Recovered/Resolved]
  - Femur fracture [Unknown]
  - Femur fracture [Unknown]
  - Drug hypersensitivity [Unknown]
  - Fracture nonunion [Unknown]
  - Low turnover osteopathy [Unknown]
  - Denture wearer [Unknown]
  - Medical device removal [Recovered/Resolved]
  - Hypercholesterolaemia [Unknown]
  - Dementia [Unknown]
  - Depression [Unknown]
  - Adverse event [Unknown]
  - Osteoporosis [Unknown]
  - Poor peripheral circulation [Unknown]
  - Anaemia [Unknown]
  - Radius fracture [Unknown]
  - Closed fracture manipulation [Unknown]
  - Femur fracture [Unknown]
  - Procedural complication [Unknown]
  - Avulsion fracture [Unknown]
  - Anaemia postoperative [Unknown]
  - Asthenia [Unknown]
  - Osteoarthritis [Unknown]
  - Meniscus removal [Unknown]
  - Chondroplasty [Unknown]
  - Knee operation [Unknown]
  - Knee deformity [Unknown]
  - Joint crepitation [Unknown]
  - Ecchymosis [Unknown]
  - Left atrial dilatation [Unknown]
  - Arthritis [Unknown]
  - Arthropathy [Unknown]
  - Muscular weakness [Not Recovered/Not Resolved]
  - Electrocardiogram QT prolonged [Unknown]
  - Adverse event [Unknown]
  - Gout [Unknown]
  - Nephrolithiasis [Unknown]
  - Adverse event [Unknown]
  - Migraine [Unknown]
  - Glaucoma [Unknown]
  - Road traffic accident [Unknown]
  - Nervous system disorder [Unknown]
  - Dry skin [Unknown]
  - Haematuria [Unknown]
  - Anxiety [Unknown]
  - Balance disorder [Unknown]
  - Confusional state [Unknown]
  - Memory impairment [Unknown]
  - Fatigue [Unknown]
  - Hypoxia [Unknown]
  - Dysarthria [Unknown]
  - Stress urinary incontinence [Unknown]
  - Faecal incontinence [Unknown]
  - Personality change [Unknown]
  - Snoring [Unknown]
  - Abasia [Unknown]
  - Anaemia [Not Recovered/Not Resolved]
  - Coordination abnormal [Unknown]
  - Flushing [Unknown]
  - Coronary artery disease [Unknown]
  - Cerebral ischaemia [Not Recovered/Not Resolved]
  - Tremor [Unknown]
  - Cerebellar syndrome [Unknown]
  - Ataxia [Unknown]
  - Toxicity to various agents [Unknown]
  - Osteoarthritis [Not Recovered/Not Resolved]
  - Vitamin B12 deficiency [Unknown]
  - Pseudodementia [Unknown]
  - Sleep apnoea syndrome [Unknown]
  - Parkinsonism [Unknown]
  - Vestibular disorder [Unknown]
  - Neuropathy peripheral [Unknown]
  - Device failure [Unknown]
  - Fall [Unknown]
  - Wrist fracture [Unknown]
  - Medical device removal [Unknown]
  - Peripheral nerve destruction [Unknown]
  - Cranial nerve disorder [Unknown]
  - Temperature intolerance [Unknown]
  - Lung disorder [Unknown]
  - Hypotension [Unknown]
  - Overdose [Unknown]
  - Drug ineffective [Unknown]
  - Diarrhoea [Unknown]
  - Arthralgia [Unknown]
  - Joint swelling [Unknown]
  - Back pain [Not Recovered/Not Resolved]
  - Back pain [Unknown]
  - Rash [Unknown]
  - Constipation [Unknown]
  - Melaena [Unknown]
  - Dysphagia [Unknown]
  - Dizziness [Unknown]
  - Headache [Not Recovered/Not Resolved]
  - Chronic obstructive pulmonary disease [Unknown]
  - Arthralgia [Unknown]
  - Osteoarthritis [Unknown]
  - Ligament sprain [Unknown]
